FAERS Safety Report 4295338-5 (Version None)
Quarter: 2004Q1

REPORT INFORMATION
  Report Type: 
  Country: None (occurrence: None)
  Receive Date: 20040216
  Receipt Date: 20030616
  Transmission Date: 20041129
  Serious: Yes (Hospitalization, Other)
  Sender: FDA-Public Use
  Company Number: US-GLAXOSMITHKLINE-A0412824A

PATIENT
  Age: 8 Year
  Sex: Female

DRUGS (4)
  1. LAMICTAL [Suspect]
     Indication: COMPLEX PARTIAL SEIZURES
     Dosage: 50MG PER DAY
     Route: 048
  2. DEPAKOTE [Concomitant]
  3. DILANTIN [Concomitant]
  4. TRILEPTAL [Concomitant]

REACTIONS (3)
  - ANOREXIA [None]
  - STATUS EPILEPTICUS [None]
  - TREMOR [None]
